FAERS Safety Report 5771890-5 (Version None)
Quarter: 2008Q2

REPORT INFORMATION
  Report Type: 
  Country: None (occurrence: None)
  Receive Date: 20080613
  Receipt Date: 20080604
  Transmission Date: 20081010
  Serious: Yes (Other)
  Sender: FDA-Public Use
  Company Number: B0524610A

PATIENT
  Sex: Male

DRUGS (6)
  1. PAROXETINE HCL [Suspect]
     Indication: DEPRESSION
     Dosage: 1TAB PER DAY
     Route: 048
  2. BUPROPION HCL [Suspect]
     Route: 065
  3. LSD [Suspect]
     Route: 048
  4. BUSPIRONE HCL [Suspect]
     Indication: DEPRESSION
  5. SERTRALINE [Suspect]
     Indication: DEPRESSION
  6. CITALOPRAM HYDROBROMIDE [Suspect]

REACTIONS (10)
  - DEREALISATION [None]
  - DRUG INTERACTION [None]
  - FLASHBACK [None]
  - FLUSHING [None]
  - HALLUCINATION, VISUAL [None]
  - MANIA [None]
  - MENTAL DISORDER [None]
  - MOOD ALTERED [None]
  - PALPITATIONS [None]
  - VISUAL DISTURBANCE [None]
